FAERS Safety Report 9462701 (Version 2)
Quarter: 2013Q3

REPORT INFORMATION
  Report Type: Report from Study
  Country: AU (occurrence: AU)
  Receive Date: 20130816
  Receipt Date: 20130826
  Transmission Date: 20140515
  Serious: Yes (Disabling)
  Sender: FDA-Public Use
  Company Number: PHHY2013AU088253

PATIENT
  Age: 74 Year
  Sex: Female

DRUGS (8)
  1. ACLASTA [Suspect]
     Dosage: 5 MG, UNK
     Route: 042
     Dates: start: 20110224
  2. ACLASTA [Suspect]
     Dosage: 5 MG, UNK
     Route: 042
     Dates: start: 20120305
  3. NEXIUM [Concomitant]
     Dosage: 20 MG, NOCTE PRN
  4. PANADEINE FORTE [Concomitant]
     Indication: PAIN
     Dosage: 1-2 TABLETS Q4H PRN
  5. CALTRATE [Concomitant]
     Dosage: 600 MG, UNK
  6. VITAMIN D [Concomitant]
     Dosage: 1 TABLET DAILY
  7. EFEXOR XR [Concomitant]
     Dosage: 150 MG, 1 CAPSULE MANE (MODIFIED RELEASE CAPSULES)
  8. PANAMAX [Concomitant]
     Dosage: 500 MG, QID

REACTIONS (1)
  - Trigeminal neuralgia [Recovering/Resolving]
